FAERS Safety Report 8988924 (Version 1)
Quarter: 2012Q4

REPORT INFORMATION
  Report Type: Spontaneous
  Country: US (occurrence: None)
  Receive Date: 20121220
  Receipt Date: 20121220
  Transmission Date: 20130627
  Serious: Yes (Other)
  Sender: FDA-Public Use
  Company Number: IMP_06116_2012

PATIENT
  Age: 19 Year
  Sex: Male

DRUGS (3)
  1. MINOCYCLINE [Suspect]
     Indication: PRODUCT USED FOR UNKNOWN INDICATION
     Dosage: (DF)
  2. PREDNISONE [Concomitant]
  3. CYCLOPHOSPHAMIDE [Concomitant]

REACTIONS (6)
  - Fatigue [None]
  - Pyrexia [None]
  - Myalgia [None]
  - Testicular pain [None]
  - Hypertension [None]
  - Polyarteritis nodosa [None]
